FAERS Safety Report 8594841 (Version 2)
Quarter: 2013Q1

REPORT INFORMATION
  Report Type: Spontaneous
  Country: DK (occurrence: DK)
  Receive Date: 20120604
  Receipt Date: 20130201
  Transmission Date: 20140127
  Serious: Yes (Disabling)
  Sender: FDA-Public Use
  Company Number: PHHY2012DK046594

PATIENT
  Age: 74 None
  Sex: Female
  Weight: 75 kg

DRUGS (7)
  1. ACETYLSALICYLIC ACID [Suspect]
     Indication: ANTICOAGULANT THERAPY
     Dosage: 75 MG, QD
     Dates: start: 20120221, end: 20120817
  2. BRILIQUE [Interacting]
     Indication: THROMBOSIS PROPHYLAXIS
     Dosage: 90 MG, BID
     Route: 048
     Dates: start: 20120319
  3. ZARATOR [Interacting]
     Indication: HYPERCHOLESTEROLAEMIA
     Dosage: 80 MG, QD
     Route: 048
     Dates: start: 20120321, end: 201208
  4. BENDROFLUMETHIAZIDE W/POTASSIUM CHLORIDE [Concomitant]
     Indication: OEDEMA
  5. LYRICA [Concomitant]
     Indication: PAIN
     Dates: start: 20120202, end: 20120809
  6. NITROGLYCERIN [Concomitant]
     Indication: CHEST PAIN
     Dates: start: 20120222, end: 201204
  7. CENTYL MED KALIUMKLORID [Concomitant]
     Indication: OEDEMA
     Dates: start: 20100909, end: 20120220

REACTIONS (5)
  - Dementia [Recovering/Resolving]
  - Dizziness [Recovering/Resolving]
  - Drug interaction [Recovered/Resolved]
  - Haematoma [Recovered/Resolved]
  - Oedema [Unknown]
